FAERS Safety Report 9958381 (Version 1)
Quarter: 2014Q1

REPORT INFORMATION
  Report Type: Report from Study
  Country: US (occurrence: US)
  Receive Date: 20140305
  Receipt Date: 20140305
  Transmission Date: 20141002
  Serious: Yes (Hospitalization, Other)
  Sender: FDA-Public Use
  Company Number: US-ROCHE-1347549

PATIENT
  Sex: Female

DRUGS (7)
  1. LUCENTIS [Suspect]
     Indication: AGE-RELATED MACULAR DEGENERATION
     Dosage: OD
     Route: 050
  2. AVASTIN [Suspect]
     Indication: AGE-RELATED MACULAR DEGENERATION
     Route: 050
  3. DILTIAZEM HCL [Concomitant]
  4. FISH OIL [Concomitant]
  5. KLOR-CON [Concomitant]
  6. LORAZEPAM [Concomitant]
  7. QUINAPRIL [Concomitant]

REACTIONS (4)
  - Cholecystectomy [Unknown]
  - Transient ischaemic attack [Unknown]
  - Cardiac pacemaker insertion [Unknown]
  - Visual impairment [Unknown]
